FAERS Safety Report 10557284 (Version 2)
Quarter: 2014Q4

REPORT INFORMATION
  Report Type: Spontaneous
  Country: SE (occurrence: SE)
  Receive Date: 20141031
  Receipt Date: 20141223
  Transmission Date: 20150529
  Serious: Yes (Life-Threatening, Hospitalization)
  Sender: FDA-Public Use
  Company Number: SE-PFIZER INC-2014300520

PATIENT
  Age: 37 Year
  Sex: Male

DRUGS (8)
  1. XANOR [Suspect]
     Active Substance: ALPRAZOLAM
     Dosage: 4 PIECES TOTALLY
     Route: 048
     Dates: start: 20130805, end: 20130805
  2. SERTRALINE [Concomitant]
     Active Substance: SERTRALINE HYDROCHLORIDE
     Dosage: UNK
  3. STESOLID [Suspect]
     Active Substance: DIAZEPAM
     Dosage: 10 PIECES TOTALLY
     Route: 048
     Dates: start: 20130805, end: 20130805
  4. THERALEN [Suspect]
     Active Substance: TRIMEPRAZINE
     Dosage: 6 ML TOTALLY
     Dates: start: 20130805, end: 20130805
  5. MIRTAZAPINE. [Concomitant]
     Active Substance: MIRTAZAPINE
     Dosage: UNK
  6. CAMPRAL [Concomitant]
     Active Substance: ACAMPROSATE CALCIUM
     Dosage: UNK
  7. OXASCAND [Suspect]
     Active Substance: OXAZEPAM
     Dosage: 4 PIECES TOTALLY
     Route: 048
     Dates: start: 20130805, end: 20130805
  8. BRICANYL [Concomitant]
     Active Substance: TERBUTALINE SULFATE
     Dosage: UNK

REACTIONS (1)
  - Toxicity to various agents [Recovered/Resolved]

NARRATIVE: CASE EVENT DATE: 20130805
